FAERS Safety Report 6658782-4 (Version None)
Quarter: 2010Q1

REPORT INFORMATION
  Report Type: 
  Country: None (occurrence: None)
  Receive Date: 20100330
  Receipt Date: 20100322
  Transmission Date: 20100710
  Serious: Yes (Other)
  Sender: FDA-Public Use
  Company Number: GXKR2010GB03374

PATIENT
  Age: 45 Year
  Sex: Female

DRUGS (5)
  1. FLUDARABINE (NGX) [Suspect]
     Indication: STEM CELL TRANSPLANT
     Route: 065
  2. BUSULPHAN [Suspect]
     Indication: STEM CELL TRANSPLANT
     Route: 065
  3. ALEMTUZUMAB [Suspect]
     Indication: STEM CELL TRANSPLANT
     Route: 065
  4. PENICILLIN V [Concomitant]
     Dosage: 250 MG, BID
     Route: 048
  5. ACYCLOVIR SODIUM [Concomitant]
     Dosage: 200 MG, TID
     Route: 048

REACTIONS (3)
  - HEPATOBILIARY DISEASE [None]
  - SARCOIDOSIS [None]
  - SKIN LESION [None]
